FAERS Safety Report 5970221-5 (Version None)
Quarter: 2008Q4

REPORT INFORMATION
  Report Type: 
  Country: None (occurrence: None)
  Receive Date: 20081126
  Receipt Date: 20081017
  Transmission Date: 20090506
  Serious: No
  Sender: FDA-Public Use
  Company Number: US-ABBOTT-08P-163-0482401-00

PATIENT
  Sex: Male

DRUGS (3)
  1. SIMCOR [Suspect]
     Indication: BLOOD CHOLESTEROL INCREASED
     Dosage: 500/20 MG
     Route: 048
     Dates: start: 20081016
  2. VARENICLINE [Concomitant]
     Indication: SMOKING CESSATION THERAPY
     Dosage: NOT REPORTED
  3. BUPROPION HCL [Concomitant]
     Indication: SMOKING CESSATION THERAPY
     Dosage: NOT REPORTED

REACTIONS (4)
  - ASTHENIA [None]
  - FEELING HOT [None]
  - FLUSHING [None]
  - PRURITUS [None]
